FAERS Safety Report 8424726-8 (Version None)
Quarter: 2012Q2

REPORT INFORMATION
  Report Type: 
  Country: None (occurrence: None)
  Receive Date: 20120611
  Receipt Date: 20120605
  Transmission Date: 20120825
  Serious: No
  Sender: FDA-Public Use
  Company Number: US-BIOGENIDEC-2012BI013573

PATIENT
  Sex: Female

DRUGS (3)
  1. BETASERON [Concomitant]
  2. COPAXONE [Concomitant]
  3. TYSABRI [Suspect]
     Indication: MULTIPLE SCLEROSIS
     Route: 042
     Dates: start: 20090914, end: 20120118

REACTIONS (13)
  - MEMORY IMPAIRMENT [None]
  - FATIGUE [None]
  - ABASIA [None]
  - MENTAL IMPAIRMENT [None]
  - GAIT DISTURBANCE [None]
  - MALAISE [None]
  - APHASIA [None]
  - CHROMATOPSIA [None]
  - AFFECT LABILITY [None]
  - HEADACHE [None]
  - DEPRESSION [None]
  - DECREASED APPETITE [None]
  - LOSS OF LIBIDO [None]
